FAERS Safety Report 5774456-6 (Version None)
Quarter: 2008Q2

REPORT INFORMATION
  Report Type: 
  Country: None (occurrence: None)
  Receive Date: 20080616
  Receipt Date: 20080606
  Transmission Date: 20081010
  Serious: Yes (Hospitalization)
  Sender: FDA-Public Use
  Company Number: ES-PFIZER INC-2008047921

PATIENT
  Age: 72 Year
  Sex: Female

DRUGS (5)
  1. ATORVASTATIN CALCIUM [Suspect]
     Indication: HYPERCHOLESTEROLAEMIA
     Route: 048
  2. CITALOPRAM HYDROBROMIDE [Interacting]
     Indication: DEPRESSION
     Route: 048
     Dates: start: 20080101, end: 20080326
  3. ACETENSIL [Interacting]
     Indication: HYPERTENSION
     Route: 048
  4. CHONDROITIN SULFATE [Interacting]
     Indication: OSTEOARTHRITIS
     Route: 048
     Dates: start: 20080101, end: 20080320
  5. REPAGLINIDE [Interacting]
     Indication: TYPE 2 DIABETES MELLITUS
     Route: 048

REACTIONS (2)
  - CHOLESTASIS [None]
  - DRUG INTERACTION [None]
